FAERS Safety Report 26011488 (Version 1)
Quarter: 2025Q4

REPORT INFORMATION
  Report Type: Spontaneous
  Country: US (occurrence: None)
  Receive Date: 20251106
  Receipt Date: 20251106
  Transmission Date: 20260117
  Serious: Yes (Life-Threatening, Hospitalization, Disabling, Other)
  Sender: FDA-CTU
  Company Number: None

PATIENT
  Age: 9 Week
  Sex: Male

DRUGS (2)
  1. BEYFORTUS [Suspect]
     Active Substance: NIRSEVIMAB-ALIP
     Indication: Respiratory syncytial virus infection
     Dates: start: 20251003
  2. BEYFORTUS [Concomitant]
     Active Substance: NIRSEVIMAB-ALIP
     Dates: start: 20251003, end: 20251003

REACTIONS (3)
  - Pulse absent [None]
  - Mouth haemorrhage [None]
  - Disseminated intravascular coagulation [None]

NARRATIVE: CASE EVENT DATE: 20251003
